FAERS Safety Report 16923874 (Version 6)
Quarter: 2020Q1

REPORT INFORMATION
  Report Type: Report from Study
  Country: TR (occurrence: TR)
  Receive Date: 20191016
  Receipt Date: 20200224
  Transmission Date: 20200409
  Serious: Yes (Hospitalization)
  Sender: FDA-Public Use
  Company Number: TR-ROCHE-2239295

PATIENT
  Age: 42 Year
  Sex: Female
  Weight: 66.9 kg

DRUGS (70)
  1. AUGMENTIN BID [Concomitant]
     Route: 065
     Dates: start: 20190612, end: 20190615
  2. CIPRO [Concomitant]
     Active Substance: CIPROFLOXACIN HYDROCHLORIDE
     Route: 065
     Dates: start: 20190118, end: 20190208
  3. PHENIRAMINE [Concomitant]
     Active Substance: PHENIRAMINE
     Indication: PROPHYLAXIS
     Route: 065
     Dates: start: 20190125, end: 20190125
  4. PHENIRAMINE [Concomitant]
     Active Substance: PHENIRAMINE
     Route: 065
     Dates: start: 20190524, end: 20190524
  5. ULCURAN [Concomitant]
     Active Substance: RANITIDINE HYDROCHLORIDE
     Route: 065
     Dates: start: 20190218, end: 20190218
  6. ULCURAN [Concomitant]
     Active Substance: RANITIDINE HYDROCHLORIDE
     Route: 065
     Dates: start: 20190311, end: 20190311
  7. ULCURAN [Concomitant]
     Active Substance: RANITIDINE HYDROCHLORIDE
     Route: 065
     Dates: start: 20190320, end: 20190320
  8. EMEND [Concomitant]
     Active Substance: APREPITANT
     Route: 065
     Dates: start: 20190125, end: 20190127
  9. ZOFRAN [Concomitant]
     Active Substance: ONDANSETRON HYDROCHLORIDE
     Route: 065
     Dates: start: 20190516, end: 20190516
  10. DEKORT [DEXAMETHASONE] [Concomitant]
     Route: 065
     Dates: start: 20190225, end: 20190225
  11. DEKORT [DEXAMETHASONE] [Concomitant]
     Route: 065
     Dates: start: 20190410, end: 20190410
  12. PHENIRAMINE [Concomitant]
     Active Substance: PHENIRAMINE
     Route: 065
     Dates: start: 20190225, end: 20190225
  13. PHENIRAMINE [Concomitant]
     Active Substance: PHENIRAMINE
     Route: 065
     Dates: start: 20190320, end: 20190320
  14. ULCURAN [Concomitant]
     Active Substance: RANITIDINE HYDROCHLORIDE
     Route: 065
     Dates: start: 20190204, end: 20190204
  15. ULCURAN [Concomitant]
     Active Substance: RANITIDINE HYDROCHLORIDE
     Route: 065
     Dates: start: 20190410, end: 20190410
  16. ULCURAN [Concomitant]
     Active Substance: RANITIDINE HYDROCHLORIDE
     Route: 065
     Dates: start: 20190424, end: 20190424
  17. EMEND [Concomitant]
     Active Substance: APREPITANT
     Route: 065
     Dates: start: 20190402, end: 20190404
  18. EMEND [Concomitant]
     Active Substance: APREPITANT
     Route: 065
     Dates: start: 20190424, end: 20190426
  19. ZOFRAN [Concomitant]
     Active Substance: ONDANSETRON HYDROCHLORIDE
     Indication: PROPHYLAXIS
     Route: 065
     Dates: start: 20190524, end: 20190524
  20. ZOFRAN [Concomitant]
     Active Substance: ONDANSETRON HYDROCHLORIDE
     Route: 065
     Dates: start: 20190125, end: 20190125
  21. ZOFRAN [Concomitant]
     Active Substance: ONDANSETRON HYDROCHLORIDE
     Route: 065
     Dates: start: 20190218, end: 20190218
  22. ZOFRAN [Concomitant]
     Active Substance: ONDANSETRON HYDROCHLORIDE
     Route: 065
     Dates: start: 20190225, end: 20190225
  23. DEKORT [DEXAMETHASONE] [Concomitant]
     Route: 065
     Dates: start: 20190311, end: 20190311
  24. DEKORT [DEXAMETHASONE] [Concomitant]
     Route: 065
     Dates: start: 20190516, end: 20190516
  25. GEMCITABINE. [Suspect]
     Active Substance: GEMCITABINE
     Indication: TRIPLE NEGATIVE BREAST CANCER
     Dosage: MOST RECENT DOSE OF GEMCITABINE PRIOR TO PNEUMONIA: 28/DEC/2018?DATE OF MOST RECENT DOSE OF GEMCITAB
     Route: 042
     Dates: start: 20181228
  26. PHENIRAMINE [Concomitant]
     Active Substance: PHENIRAMINE
     Route: 065
     Dates: start: 20190204, end: 20190204
  27. ULCURAN [Concomitant]
     Active Substance: RANITIDINE HYDROCHLORIDE
     Route: 065
     Dates: start: 20190402, end: 20190402
  28. ULCURAN [Concomitant]
     Active Substance: RANITIDINE HYDROCHLORIDE
     Route: 065
     Dates: start: 20181228, end: 20181228
  29. ZOFRAN [Concomitant]
     Active Substance: ONDANSETRON HYDROCHLORIDE
     Route: 065
     Dates: start: 20190320, end: 20190320
  30. ZOFRAN [Concomitant]
     Active Substance: ONDANSETRON HYDROCHLORIDE
     Route: 065
     Dates: start: 20190402, end: 20190402
  31. DEKORT [DEXAMETHASONE] [Concomitant]
     Route: 065
     Dates: start: 20190424, end: 20190424
  32. DILTIZEM [Concomitant]
     Route: 065
     Dates: start: 20190614
  33. PHENIRAMINE [Concomitant]
     Active Substance: PHENIRAMINE
     Route: 065
     Dates: start: 20190218, end: 20190218
  34. PHENIRAMINE [Concomitant]
     Active Substance: PHENIRAMINE
     Route: 065
     Dates: start: 20190424, end: 20190424
  35. PHENIRAMINE [Concomitant]
     Active Substance: PHENIRAMINE
     Route: 065
     Dates: start: 20190502, end: 20190502
  36. EMEND [Concomitant]
     Active Substance: APREPITANT
     Route: 065
     Dates: start: 20190311, end: 20190313
  37. ZOFRAN [Concomitant]
     Active Substance: ONDANSETRON HYDROCHLORIDE
     Route: 065
     Dates: start: 20190204, end: 20190204
  38. ZOFRAN [Concomitant]
     Active Substance: ONDANSETRON HYDROCHLORIDE
     Route: 065
     Dates: start: 20190424, end: 20190424
  39. ZOFRAN [Concomitant]
     Active Substance: ONDANSETRON HYDROCHLORIDE
     Route: 065
     Dates: start: 20190516, end: 20190516
  40. DEKORT [DEXAMETHASONE] [Concomitant]
     Indication: PREMEDICATION
     Route: 065
     Dates: start: 20181228, end: 20181228
  41. DEKORT [DEXAMETHASONE] [Concomitant]
     Route: 065
     Dates: start: 20190218, end: 20190218
  42. DEKORT [DEXAMETHASONE] [Concomitant]
     Route: 065
     Dates: start: 20190524
  43. CORDARONE [Concomitant]
     Active Substance: AMIODARONE HYDROCHLORIDE
     Route: 065
     Dates: start: 20190614, end: 20190619
  44. MORFIA [Concomitant]
     Route: 065
     Dates: start: 201811
  45. ATEZOLIZUMAB. [Suspect]
     Active Substance: ATEZOLIZUMAB
     Indication: TRIPLE NEGATIVE BREAST CANCER
     Dosage: 1200 MG/20ML ?MOST RECENT DOSE OF BLINDED ATEZOLIZUMAB: 28/DEC/2018?DATE OF MOST RECENT DOSE OF BLIN
     Route: 041
     Dates: start: 20181228
  46. CARBOPLATIN. [Suspect]
     Active Substance: CARBOPLATIN
     Indication: TRIPLE NEGATIVE BREAST CANCER
     Dosage: MOST RECENT DOSE OF CARBOPLATIN PRIOR TO PNEUMONIA: 28/DEC/2018?DATE OF MOST RECENT DOSE (150 MG) OF
     Route: 042
     Dates: start: 20181228
  47. PHENIRAMINE [Concomitant]
     Active Substance: PHENIRAMINE
     Route: 065
     Dates: start: 20190311, end: 20190311
  48. PHENIRAMINE [Concomitant]
     Active Substance: PHENIRAMINE
     Route: 065
     Dates: start: 20190516, end: 20190516
  49. ULCURAN [Concomitant]
     Active Substance: RANITIDINE HYDROCHLORIDE
     Route: 065
     Dates: start: 20190225, end: 20190225
  50. ULCURAN [Concomitant]
     Active Substance: RANITIDINE HYDROCHLORIDE
     Route: 065
     Dates: start: 20190516, end: 20190516
  51. DEKORT [DEXAMETHASONE] [Concomitant]
     Route: 065
     Dates: start: 20190125, end: 20190125
  52. AUGMENTIN BID [Concomitant]
     Route: 065
     Dates: start: 20180118, end: 20190201
  53. PHENIRAMINE [Concomitant]
     Active Substance: PHENIRAMINE
     Route: 065
     Dates: start: 20190410, end: 20190410
  54. ULCURAN [Concomitant]
     Active Substance: RANITIDINE HYDROCHLORIDE
     Route: 065
     Dates: start: 20190502, end: 20190502
  55. EMEND [Concomitant]
     Active Substance: APREPITANT
     Route: 065
     Dates: start: 20190218, end: 20190220
  56. EMEND [Concomitant]
     Active Substance: APREPITANT
     Route: 065
     Dates: start: 20190516, end: 20190516
  57. METPAMID [METOCLOPRAMIDE HYDROCHLORIDE] [Concomitant]
     Indication: PNEUMONIA
     Route: 065
     Dates: start: 20190318, end: 20190409
  58. DEKORT [DEXAMETHASONE] [Concomitant]
     Route: 065
     Dates: start: 20190502, end: 20190502
  59. PHENIRAMINE [Concomitant]
     Active Substance: PHENIRAMINE
     Route: 065
     Dates: start: 20190402, end: 20190402
  60. ULCURAN [Concomitant]
     Active Substance: RANITIDINE HYDROCHLORIDE
     Route: 065
     Dates: start: 20190524, end: 20190524
  61. ZOFRAN [Concomitant]
     Active Substance: ONDANSETRON HYDROCHLORIDE
     Route: 065
     Dates: start: 20190311, end: 20190311
  62. ZOFRAN [Concomitant]
     Active Substance: ONDANSETRON HYDROCHLORIDE
     Route: 065
     Dates: start: 20190502, end: 20190502
  63. GRANEXA [Concomitant]
     Indication: PROPHYLAXIS
     Route: 065
     Dates: start: 20181228
  64. DEKORT [DEXAMETHASONE] [Concomitant]
     Route: 065
     Dates: start: 20190204, end: 20190204
  65. DEKORT [DEXAMETHASONE] [Concomitant]
     Route: 065
     Dates: start: 20190320, end: 20190320
  66. DEKORT [DEXAMETHASONE] [Concomitant]
     Route: 065
     Dates: start: 20190402, end: 20190402
  67. FOSTER [Concomitant]
     Active Substance: BECLOMETHASONE\FORMOTEROL
     Route: 065
     Dates: start: 20190118, end: 20190201
  68. PHENIRAMINE [Concomitant]
     Active Substance: PHENIRAMINE
     Route: 065
     Dates: start: 20181228, end: 20181228
  69. ULCURAN [Concomitant]
     Active Substance: RANITIDINE HYDROCHLORIDE
     Indication: PROPHYLAXIS
     Route: 065
     Dates: start: 20190125, end: 20190125
  70. ZOFRAN [Concomitant]
     Active Substance: ONDANSETRON HYDROCHLORIDE
     Route: 065
     Dates: start: 20190410, end: 20190410

REACTIONS (3)
  - Atrial fibrillation [Recovered/Resolved]
  - Pneumonia [Recovered/Resolved]
  - Atrial fibrillation [Recovered/Resolved]

NARRATIVE: CASE EVENT DATE: 20181230
